FAERS Safety Report 12945717 (Version 1)
Quarter: 2016Q4

REPORT INFORMATION
  Report Type: Spontaneous
  Country: US (occurrence: US)
  Receive Date: 20161115
  Receipt Date: 20161115
  Transmission Date: 20170207
  Serious: No
  Sender: FDA-Public Use
  Company Number: US-ETHYPHARM USA CORP-EY-BP-US-2016-049

PATIENT
  Sex: Male

DRUGS (10)
  1. SUBUTEX [Suspect]
     Active Substance: BUPRENORPHINE HYDROCHLORIDE
     Indication: DEPRESSION
     Dosage: 1.75-2MG
  2. NALTREXONE [Concomitant]
     Active Substance: NALTREXONE
  3. PROPANOLOL [Concomitant]
     Active Substance: PROPRANOLOL HYDROCHLORIDE
     Indication: HYPERTENSION
  4. XANAX [Concomitant]
     Active Substance: ALPRAZOLAM
  5. ATENOLOL. [Concomitant]
     Active Substance: ATENOLOL
     Indication: HYPERTENSION
  6. CODEINE [Concomitant]
     Active Substance: CODEINE
  7. AMBIEN CR [Concomitant]
     Active Substance: ZOLPIDEM TARTRATE
  8. LUNESTA [Concomitant]
     Active Substance: ESZOPICLONE
  9. SEROQUEL [Suspect]
     Active Substance: QUETIAPINE FUMARATE
     Indication: BIPOLAR II DISORDER
  10. POT [Concomitant]

REACTIONS (10)
  - Blood pressure increased [Unknown]
  - Hypoaesthesia [Unknown]
  - Paraesthesia [Unknown]
  - Off label use [Unknown]
  - Dyspnoea [Unknown]
  - Drug withdrawal syndrome [Unknown]
  - Therapeutic response unexpected [Unknown]
  - Panic attack [Unknown]
  - Heart rate decreased [Unknown]
  - Erectile dysfunction [Unknown]
